FAERS Safety Report 25245035 (Version 1)
Quarter: 2025Q2

REPORT INFORMATION
  Report Type: Spontaneous
  Country: US (occurrence: None)
  Receive Date: 20250425
  Receipt Date: 20250425
  Transmission Date: 20250717
  Serious: Yes (Hospitalization)
  Sender: FDA-CTU
  Company Number: None

PATIENT
  Age: 85 Year

DRUGS (1)
  1. NUPLAZID [Suspect]
     Active Substance: PIMAVANSERIN TARTRATE
     Indication: Hallucination
     Dosage: 34 MG DAILY ORAL ?
     Route: 048
     Dates: start: 20250402

REACTIONS (3)
  - Malignant melanoma stage IV [None]
  - Loss of consciousness [None]
  - Therapy cessation [None]

NARRATIVE: CASE EVENT DATE: 20250406
